FAERS Safety Report 9830651 (Version 1)
Quarter: 2014Q1

REPORT INFORMATION
  Report Type: Spontaneous
  Country: US (occurrence: US)
  Receive Date: 20140120
  Receipt Date: 20140120
  Transmission Date: 20141002
  Serious: No
  Sender: FDA-Public Use
  Company Number: US-B.I. PHARMACEUTICALS,INC./RIDGEFIELD-2014-BI-01419BP

PATIENT
  Age: 70 Year
  Sex: Male
  Weight: 68 kg

DRUGS (6)
  1. COMBIVENT [Suspect]
     Indication: EMPHYSEMA
     Dosage: STRENGTH: 20 MCG / 100 MCG; DAILY DOSE: 60 MCG/300 MCG
     Route: 055
     Dates: start: 20140108
  2. BENECAR [Concomitant]
     Indication: HYPERTENSION
     Dosage: 5 MG
     Route: 048
  3. PRILOSEC [Concomitant]
     Indication: GASTROOESOPHAGEAL REFLUX DISEASE
     Dosage: (INHALATION AEROSOL)
     Route: 048
  4. NEBULIZER ALBUTEROL [Concomitant]
     Dosage: (INHALATION AEROSOL)
     Route: 055
  5. FISH OIL [Concomitant]
     Route: 048
  6. MULTIVITAMIN [Concomitant]
     Route: 048

REACTIONS (2)
  - Oxygen consumption increased [Not Recovered/Not Resolved]
  - Drug ineffective [Not Recovered/Not Resolved]
